FAERS Safety Report 6856082-0 (Version None)
Quarter: 2010Q3

REPORT INFORMATION
  Report Type: 
  Country: None (occurrence: None)
  Receive Date: 20100715
  Receipt Date: 20100715
  Transmission Date: 20110219
  Serious: Yes (Life-Threatening, Hospitalization)
  Sender: FDA-Public Use
  Company Number: None

PATIENT
  Age: 67 Year
  Sex: Male
  Weight: 81.6475 kg

DRUGS (4)
  1. AVANDAMET [Suspect]
     Indication: TYPE 2 DIABETES MELLITUS
     Dosage: 2 --500MGS. 1 X A DAY PO
     Route: 048
     Dates: start: 20090101, end: 20100510
  2. ACTOPLUS MET [Concomitant]
  3. CUMADIN [Concomitant]
  4. AVANDIA [Concomitant]

REACTIONS (1)
  - ATRIAL FIBRILLATION [None]
